FAERS Safety Report 5346191-X (Version None)
Quarter: 2007Q2

REPORT INFORMATION
  Report Type: 
  Country: None (occurrence: None)
  Receive Date: 20070601
  Receipt Date: 20070522
  Transmission Date: 20071010
  Serious: Yes (Death)
  Sender: FDA-Public Use
  Company Number: 2007US001168

PATIENT
  Age: 80 Year

DRUGS (1)
  1. AMBISOME [Suspect]
     Indication: MENINGITIS CRYPTOCOCCAL
     Dosage: 200 MG, UID/QD, IV NOS
     Route: 042
     Dates: start: 20070410

REACTIONS (2)
  - BACTERAEMIA [None]
  - RENAL DISORDER [None]
